FAERS Safety Report 5038983-1 (Version None)
Quarter: 2006Q2

REPORT INFORMATION
  Report Type: 
  Country: None (occurrence: None)
  Receive Date: 20060623
  Receipt Date: 20060608
  Transmission Date: 20061013
  Serious: Yes (Hospitalization)
  Sender: FDA-Public Use
  Company Number: 2006BI008759

PATIENT
  Age: 60 Year
  Sex: Male

DRUGS (12)
  1. ZEVALIN [Suspect]
     Indication: BONE MARROW CONDITIONING REGIMEN
     Dosage: 1174 MBQ 1X IV
     Route: 042
     Dates: start: 20060427, end: 20060427
  2. MABTHERA [Concomitant]
  3. MCNU [Concomitant]
  4. ETOPOSIDE [Concomitant]
  5. ARACYTINE [Concomitant]
  6. MELPHALAN [Concomitant]
  7. PROZAC [Concomitant]
  8. MOPRAL [Concomitant]
  9. LASIX [Concomitant]
  10. TOPALGIC ^HOUDE^ [Concomitant]
  11. SOLU-MEDROL [Concomitant]
  12. PLITICAN [Concomitant]

REACTIONS (4)
  - ENCEPHALOPATHY [None]
  - HERPES VIRUS INFECTION [None]
  - RESPIRATORY FAILURE [None]
  - STEM CELL TRANSPLANT [None]
